FAERS Safety Report 16984313 (Version 1)
Quarter: 2019Q4

REPORT INFORMATION
  Report Type: Spontaneous
  Country: US (occurrence: US)
  Receive Date: 20191101
  Receipt Date: 20191101
  Transmission Date: 20200122
  Serious: No
  Sender: FDA-Public Use
  Company Number: US-FARMAPROD-201906-0975

PATIENT
  Sex: Female

DRUGS (15)
  1. CELECOXIB. [Concomitant]
     Active Substance: CELECOXIB
  2. EXCEDRIN [Concomitant]
     Active Substance: ACETAMINOPHEN\ASPIRIN\CAFFEINE
  3. HYDROCHLOROTHIAZIDE. [Concomitant]
     Active Substance: HYDROCHLOROTHIAZIDE
  4. FERROUS SULFATE. [Concomitant]
     Active Substance: FERROUS SULFATE
  5. VITAMIN C [Concomitant]
     Active Substance: ASCORBIC ACID
  6. CENTRUM SILVER [Concomitant]
     Active Substance: MINERALS\VITAMINS
  7. ELIQUIS [Concomitant]
     Active Substance: APIXABAN
  8. XANAX [Concomitant]
     Active Substance: ALPRAZOLAM
  9. OXERVATE [Suspect]
     Active Substance: CENEGERMIN-BKBJ
     Indication: ULCERATIVE KERATITIS
     Route: 047
  10. RAMIPRIL. [Concomitant]
     Active Substance: RAMIPRIL
  11. LOPRESSOR [Concomitant]
     Active Substance: METOPROLOL TARTRATE
  12. FLAXSEED [Concomitant]
     Active Substance: FLAX SEED
  13. PRILOSEC [Concomitant]
     Active Substance: OMEPRAZOLE MAGNESIUM
  14. BUPROPION HYDROCHLORIDE. [Concomitant]
     Active Substance: BUPROPION HYDROCHLORIDE
  15. MECLOZINE HYDROCHLORIDE [Concomitant]
     Active Substance: MECLOZINE DIHYDROCHLORIDE

REACTIONS (4)
  - Paranasal sinus hypersecretion [Unknown]
  - Headache [Unknown]
  - Intentional product misuse [Unknown]
  - Eye pain [Unknown]
